FAERS Safety Report 5452133-9 (Version None)
Quarter: 2007Q3

REPORT INFORMATION
  Report Type: 
  Country: None (occurrence: None)
  Receive Date: 20070912
  Receipt Date: 20070912
  Transmission Date: 20080115
  Serious: Yes (Other)
  Sender: FDA-Public Use
  Company Number: None

PATIENT
  Age: 49 Year
  Sex: Female
  Weight: 49.8957 kg

DRUGS (1)
  1. NORVASC [Suspect]
     Indication: BLOOD PRESSURE INCREASED
     Dosage: 10MG QD PO LESS THAN SIX MONTHS
     Route: 048
     Dates: start: 20030501, end: 20031001

REACTIONS (5)
  - DEPRESSION [None]
  - HEART RATE INCREASED [None]
  - MEDICATION ERROR [None]
  - PALPITATIONS [None]
  - SUICIDAL IDEATION [None]
